FAERS Safety Report 11574638 (Version 1)
Quarter: 2015Q3

REPORT INFORMATION
  Report Type: Spontaneous
  Country: US (occurrence: None)
  Receive Date: 20150928
  Receipt Date: 20150928
  Transmission Date: 20151125
  Serious: Yes (Hospitalization)
  Sender: FDA-Public Use
  Company Number: None

PATIENT
  Sex: Male
  Weight: 58.2 kg

DRUGS (17)
  1. EMTRIVA [Concomitant]
     Active Substance: EMTRICITABINE
  2. IPRATROPIUM [Concomitant]
     Active Substance: IPRATROPIUM
  3. SPIRIVA [Concomitant]
     Active Substance: TIOTROPIUM BROMIDE MONOHYDRATE
  4. HARVONI [Suspect]
     Active Substance: LEDIPASVIR\SOFOSBUVIR
     Indication: HEPATITIS C
     Dosage: 90/400MG
     Route: 048
     Dates: start: 20150205, end: 20150802
  5. CARDURA [Concomitant]
     Active Substance: DOXAZOSIN MESYLATE
  6. RANITIDINE [Concomitant]
     Active Substance: RANITIDINE\RANITIDINE HYDROCHLORIDE
  7. LISINOPRIL. [Concomitant]
     Active Substance: LISINOPRIL
  8. ALBUTEROL. [Concomitant]
     Active Substance: ALBUTEROL
  9. ASPIRIN. [Concomitant]
     Active Substance: ASPIRIN
  10. VALTREX [Concomitant]
     Active Substance: VALACYCLOVIR HYDROCHLORIDE
  11. RIBAVIRIN 200 MG [Suspect]
     Active Substance: RIBAVIRIN
     Indication: HEPATITIS C
     Dosage: 200MG X5/DAY PO
     Route: 048
     Dates: start: 20150320, end: 20150430
  12. PREDNISOLONE. [Concomitant]
     Active Substance: PREDNISOLONE
  13. KALETRA [Concomitant]
     Active Substance: LOPINAVIR\RITONAVIR
  14. MULTIVITAMIN [Concomitant]
     Active Substance: VITAMINS
  15. PATANOL [Concomitant]
     Active Substance: OLOPATADINE HYDROCHLORIDE
  16. RALTEGRAVIR. [Concomitant]
     Active Substance: RALTEGRAVIR
  17. FLOMAX [Concomitant]
     Active Substance: TAMSULOSIN HYDROCHLORIDE

REACTIONS (2)
  - Pneumonia [None]
  - Haemoglobin decreased [None]

NARRATIVE: CASE EVENT DATE: 20150416
